FAERS Safety Report 8475141-2 (Version None)
Quarter: 2012Q2

REPORT INFORMATION
  Report Type: 
  Country: None (occurrence: None)
  Receive Date: 20120628
  Receipt Date: 20120625
  Transmission Date: 20120825
  Serious: Yes (Other)
  Sender: FDA-Public Use
  Company Number: US-PFIZER INC-2011300808

PATIENT
  Sex: Female

DRUGS (4)
  1. ACCUPRIL [Concomitant]
     Dosage: UNK
  2. EFFEXOR XR [Suspect]
     Dosage: UNK
  3. LIPITOR [Concomitant]
     Dosage: UNK
  4. PROTONIX [Concomitant]
     Dosage: UNK

REACTIONS (1)
  - VIOLENCE-RELATED SYMPTOM [None]
